FAERS Safety Report 9457403 (Version 3)
Quarter: 2013Q4

REPORT INFORMATION
  Report Type: Spontaneous
  Country: BR (occurrence: BR)
  Receive Date: 20130814
  Receipt Date: 20131017
  Transmission Date: 20140711
  Serious: Yes (Other)
  Sender: FDA-Public Use
  Company Number: BR-RANBAXY-2013R5-72215

PATIENT
  Sex: Male
  Weight: 62 kg

DRUGS (7)
  1. NORTRIPTYLINE [Suspect]
     Indication: DEPRESSION
     Dosage: 50 MG, QD
     Route: 048
     Dates: start: 20130722
  2. NORTRIPTYLINE [Suspect]
     Dosage: UNK
  3. RIVOTRIL [Concomitant]
     Indication: DEPRESSION
     Dosage: 2 MG, QD
     Route: 065
  4. LUVOX [Concomitant]
     Indication: DEPRESSION
     Dosage: 50 MG, QD
     Route: 065
  5. LYRICA [Concomitant]
     Indication: PAIN
     Dosage: 1 DF, PRN
     Route: 065
  6. CYSTEX [Concomitant]
     Indication: BLADDER PAIN
     Dosage: 1 DF, QD
     Route: 065
     Dates: start: 20130701
  7. OMEPRAZOLE [Concomitant]
     Indication: GASTRITIS
     Dosage: 1 DF, QD IN THE MORNING
     Route: 065

REACTIONS (5)
  - Hypersensitivity [Recovered/Resolved]
  - Dry mouth [Not Recovered/Not Resolved]
  - Oral pruritus [Not Recovered/Not Resolved]
  - Chest pain [Recovered/Resolved]
  - Eye irritation [Recovered/Resolved]
